FAERS Safety Report 9041291 (Version 1)
Quarter: 2013Q1

REPORT INFORMATION
  Report Type: Spontaneous
  Country: US (occurrence: None)
  Receive Date: 20130118
  Receipt Date: 20130118
  Transmission Date: 20140127
  Serious: No
  Sender: FDA-Public Use
  Company Number: DKLU1087755

PATIENT
  Age: 3 Year
  Sex: Female

DRUGS (1)
  1. SABRIL (FOR ORAL SOLUTION) (SABRIL) (VIGABATRIN) (500 MG, POWDER FOR ORAL SOLUTION) [Suspect]
     Indication: INFANTILE SPASMS
     Route: 048
     Dates: start: 20100709

REACTIONS (2)
  - Drug ineffective [None]
  - Electroencephalogram abnormal [None]
